FAERS Safety Report 6321677-X (Version None)
Quarter: 2009Q3

REPORT INFORMATION
  Report Type: 
  Country: None (occurrence: None)
  Receive Date: 20090819
  Receipt Date: 20090812
  Transmission Date: 20100115
  Serious: Yes (Other)
  Sender: FDA-Public Use
  Company Number: 2009SP016629

PATIENT
  Age: 30 Year
  Sex: Male

DRUGS (10)
  1. NOXAFIL [Suspect]
     Indication: ASPERGILLOSIS
  2. VINCRISTINE [Concomitant]
     Route: 048
  3. . [Concomitant]
  4. . [Concomitant]
  5. . [Concomitant]
  6. . [Concomitant]
  7. . [Concomitant]
  8. . [Concomitant]
  9. . [Concomitant]
  10. . [Concomitant]

REACTIONS (1)
  - GUILLAIN-BARRE SYNDROME [None]
